FAERS Safety Report 19311025 (Version 2)
Quarter: 2021Q2

REPORT INFORMATION
  Report Type: Report from Study
  Country: DE (occurrence: DE)
  Receive Date: 20210526
  Receipt Date: 20210528
  Transmission Date: 20210717
  Serious: Yes (Life-Threatening, Hospitalization, Other)
  Sender: FDA-Public Use
  Company Number: DE-JNJFOC-20210541195

PATIENT
  Age: 47 Year
  Sex: Male
  Weight: 80 kg

DRUGS (9)
  1. BUDESONIDE. [Concomitant]
     Active Substance: BUDESONIDE
     Dates: start: 201902, end: 20190415
  2. SALOFALK [MESALAZINE] [Concomitant]
     Active Substance: MESALAMINE
     Dates: start: 201803
  3. STELARA [Concomitant]
     Active Substance: USTEKINUMAB
     Route: 065
     Dates: start: 20210413, end: 20210502
  4. SALOFALK [MESALAZINE] [Concomitant]
     Active Substance: MESALAMINE
     Dates: start: 201812, end: 20190421
  5. ENTYVIO [Concomitant]
     Active Substance: VEDOLIZUMAB
     Dates: start: 20190313, end: 20200305
  6. SIMPONI [Suspect]
     Active Substance: GOLIMUMAB
     Indication: COLITIS ULCERATIVE
     Route: 058
     Dates: start: 20181120, end: 20190212
  7. BUDESONIDE. [Concomitant]
     Active Substance: BUDESONIDE
     Dates: start: 201812, end: 201902
  8. ENTYVIO [Concomitant]
     Active Substance: VEDOLIZUMAB
     Dates: start: 20200306, end: 20201029
  9. VEDOLIZUMAB [Concomitant]
     Active Substance: VEDOLIZUMAB
     Route: 058
     Dates: start: 20201110, end: 20210412

REACTIONS (2)
  - Liver abscess [Not Recovered/Not Resolved]
  - Sepsis [Not Recovered/Not Resolved]

NARRATIVE: CASE EVENT DATE: 20210428
